FAERS Safety Report 11582045 (Version 1)
Quarter: 2015Q4

REPORT INFORMATION
  Report Type: Spontaneous
  Country: US (occurrence: US)
  Receive Date: 20151001
  Receipt Date: 20151001
  Transmission Date: 20160304
  Serious: No
  Sender: FDA-Public Use
  Company Number: US-ROCHE-684740

PATIENT
  Age: 54 Year
  Sex: Female

DRUGS (3)
  1. HYDROCODONE [Suspect]
     Active Substance: HYDROCODONE
     Indication: TOOTHACHE
     Route: 065
  2. RIBAVIRIN. [Suspect]
     Active Substance: RIBAVIRIN
     Indication: HEPATITIS C
     Dosage: TAKEN IN DIVIDED DOSES
     Route: 065
  3. PEGASYS [Suspect]
     Active Substance: PEGINTERFERON ALFA-2A
     Indication: HEPATITIS C
     Dosage: PRE-FILLED SYRINGE
     Route: 065

REACTIONS (5)
  - Toothache [Unknown]
  - Swelling face [Unknown]
  - Tooth infection [Unknown]
  - Nausea [Unknown]
  - Dry mouth [Unknown]

NARRATIVE: CASE EVENT DATE: 20100115
